FAERS Safety Report 6259918-X (Version None)
Quarter: 2009Q3

REPORT INFORMATION
  Report Type: 
  Country: None (occurrence: None)
  Receive Date: 20090708
  Receipt Date: 20090630
  Transmission Date: 20100115
  Serious: Yes (Hospitalization, Other)
  Sender: FDA-Public Use
  Company Number: PHHY2009BE26306

PATIENT
  Sex: Female

DRUGS (4)
  1. ACLASTA [Suspect]
     Indication: OSTEOPOROSIS
     Dosage: 5 MG, UNK
     Route: 042
     Dates: start: 20090401
  2. CALCIUM [Concomitant]
  3. REQUIP [Concomitant]
     Dosage: 4 MG DAILY
  4. EFFORTIL [Concomitant]
     Indication: HYPOTENSION
     Dosage: IF NEEDED

REACTIONS (12)
  - ASTHENIA [None]
  - CRUSH SYNDROME [None]
  - FALL [None]
  - HYPOKINESIA [None]
  - HYPOTENSION [None]
  - INFLUENZA LIKE ILLNESS [None]
  - MALAISE [None]
  - MUSCULAR WEAKNESS [None]
  - MUSCULOSKELETAL STIFFNESS [None]
  - MYALGIA [None]
  - PARKINSON'S DISEASE [None]
  - RENAL IMPAIRMENT [None]
